FAERS Safety Report 11894997 (Version 2)
Quarter: 2016Q1

REPORT INFORMATION
  Report Type: Report from Study
  Country: US (occurrence: US)
  Receive Date: 20160107
  Receipt Date: 20160315
  Transmission Date: 20160526
  Serious: Yes (Hospitalization)
  Sender: FDA-Public Use
  Company Number: US-ASTRAZENECA-2016SE00698

PATIENT
  Age: 23084 Day
  Sex: Female
  Weight: 111.6 kg

DRUGS (10)
  1. CHILDRENS ASPIRIN [Suspect]
     Active Substance: ASPIRIN
     Route: 048
     Dates: start: 20150702, end: 20150802
  2. DRISDOL [Suspect]
     Active Substance: ERGOCALCIFEROL
     Route: 048
     Dates: start: 20150702, end: 20151002
  3. HYDRALAZINE [Suspect]
     Active Substance: HYDRALAZINE HYDROCHLORIDE
     Route: 048
     Dates: start: 20150702, end: 20150802
  4. OMEPRAZOLE. [Suspect]
     Active Substance: OMEPRAZOLE
     Route: 048
     Dates: start: 20150702, end: 20150802
  5. ATORVASTATIN [Suspect]
     Active Substance: ATORVASTATIN
     Route: 048
     Dates: start: 20150702, end: 20150802
  6. CARVEDILOL. [Suspect]
     Active Substance: CARVEDILOL
     Route: 048
     Dates: start: 20150702, end: 20150716
  7. AZD6140 CODE NOT BROKEN [Suspect]
     Active Substance: TICAGRELOR
     Indication: PERIPHERAL ARTERIAL OCCLUSIVE DISEASE
     Route: 048
     Dates: start: 20130416
  8. OXYCODONE [Suspect]
     Active Substance: OXYCODONE
     Route: 048
  9. RANOLAZINE [Suspect]
     Active Substance: RANOLAZINE
     Route: 048
     Dates: start: 20150702, end: 20150802
  10. BUMETANIDE. [Suspect]
     Active Substance: BUMETANIDE
     Route: 048
     Dates: start: 20150702, end: 20150716

REACTIONS (1)
  - Activities of daily living impaired [Recovered/Resolved]

NARRATIVE: CASE EVENT DATE: 20150702
